FAERS Safety Report 13834370 (Version 5)
Quarter: 2018Q3

REPORT INFORMATION
  Report Type: Report from Study
  Country: US (occurrence: US)
  Receive Date: 20170804
  Receipt Date: 20180831
  Transmission Date: 20181010
  Serious: Yes (Hospitalization)
  Sender: FDA-Public Use
  Company Number: US-TAKEDA-2017MPI000509

PATIENT
  Age: 68 Year
  Sex: Male
  Weight: 82.54 kg

DRUGS (5)
  1. REVLIMID [Suspect]
     Active Substance: LENALIDOMIDE
     Indication: PRODUCT USED FOR UNKNOWN INDICATION
     Dosage: 15 MG, UNK
     Route: 065
     Dates: start: 2017, end: 201710
  2. IXAZOMIB [Suspect]
     Active Substance: IXAZOMIB
     Dosage: UNK
     Route: 065
     Dates: start: 20170714
  3. IXAZOMIB [Suspect]
     Active Substance: IXAZOMIB
     Dosage: 3 MG, UNK
     Route: 048
     Dates: start: 2017, end: 201710
  4. IXAZOMIB [Suspect]
     Active Substance: IXAZOMIB
     Indication: PLASMA CELL MYELOMA
     Dosage: 4 MG, UNK
     Route: 048
  5. GABAPENTIN. [Concomitant]
     Active Substance: GABAPENTIN
     Route: 065

REACTIONS (9)
  - Back pain [Unknown]
  - Red blood cell count decreased [Unknown]
  - Rash generalised [Recovering/Resolving]
  - Drug dose omission [Unknown]
  - Localised infection [Recovered/Resolved]
  - Platelet count decreased [Unknown]
  - Malaise [Unknown]
  - White blood cell count decreased [Unknown]
  - Cough [Unknown]

NARRATIVE: CASE EVENT DATE: 201710
